FAERS Safety Report 5541988-5 (Version None)
Quarter: 2007Q4

REPORT INFORMATION
  Report Type: 
  Country: None (occurrence: None)
  Receive Date: 20071210
  Receipt Date: 20071127
  Transmission Date: 20080405
  Serious: Yes (Hospitalization, Other)
  Sender: FDA-Public Use
  Company Number: US-MERCK-0711USA04992

PATIENT
  Age: 68 Year
  Sex: Female

DRUGS (9)
  1. DECADRON [Suspect]
     Indication: MULTIPLE MYELOMA
     Route: 048
     Dates: start: 20060911, end: 20060914
  2. DECADRON [Suspect]
     Route: 048
     Dates: start: 20061009
  3. REVLIMID [Suspect]
     Indication: MULTIPLE MYELOMA
     Route: 048
     Dates: start: 20060911, end: 20061001
  4. REVLIMID [Suspect]
     Route: 048
     Dates: start: 20061009
  5. ZOLOFT [Concomitant]
     Route: 065
  6. MAXZIDE [Concomitant]
     Route: 065
  7. ALLOPURINOL [Concomitant]
     Route: 065
  8. AREDIA [Concomitant]
     Route: 065
  9. MEXITIL [Concomitant]
     Indication: MULTIPLE MYELOMA
     Route: 065

REACTIONS (3)
  - ANAEMIA [None]
  - FULL BLOOD COUNT DECREASED [None]
  - ORTHOSTATIC HYPOTENSION [None]
